FAERS Safety Report 9472794 (Version 3)
Quarter: 2014Q2

REPORT INFORMATION
  Report Type: Spontaneous
  Country: US (occurrence: US)
  Receive Date: 20130823
  Receipt Date: 20140509
  Transmission Date: 20141212
  Serious: No
  Sender: FDA-Public Use
  Company Number: US-PFIZER INC-2013243230

PATIENT
  Age: 45 Year
  Sex: Female
  Weight: 72.56 kg

DRUGS (3)
  1. LYRICA [Suspect]
     Indication: FIBROMYALGIA
     Dosage: 50 MG, 3X/DAY
     Route: 048
     Dates: start: 2012
  2. LYRICA [Suspect]
     Dosage: 75 MG, 3X/DAY
     Route: 048
  3. LYRICA [Suspect]
     Dosage: 100 MG, 3X/DAY
     Route: 048

REACTIONS (5)
  - Drug ineffective [Unknown]
  - Feeling hot [Unknown]
  - Feeling abnormal [Unknown]
  - Malaise [Unknown]
  - Nausea [Unknown]
